FAERS Safety Report 22070634 (Version 6)
Quarter: 2023Q2

REPORT INFORMATION
  Report Type: Report from Study
  Country: US (occurrence: US)
  Receive Date: 20230307
  Receipt Date: 20230416
  Transmission Date: 20230722
  Serious: Yes (Death, Hospitalization, Other)
  Sender: FDA-Public Use
  Company Number: US-ABBVIE-4330846

PATIENT
  Age: 71 Year
  Sex: Male
  Weight: 88.45 kg

DRUGS (32)
  1. VENCLEXTA [Suspect]
     Active Substance: VENETOCLAX
     Indication: Lymphocytosis
     Dosage: FORM STRENGTH: 100?FORM STRENGTH UNITS: MILLIGRAM
     Route: 048
  2. NEURONTIN [Concomitant]
     Active Substance: GABAPENTIN
     Indication: Product used for unknown indication
     Dosage: TAKE 1 TABLET AT BEDTIME THEN INCREASE 1 TAB EVERY DAYS UNTIL REACH 100 MG TID?FORM STRENGTH: 100...
     Route: 048
  3. REVLIMID [Concomitant]
     Active Substance: LENALIDOMIDE
     Indication: Product used for unknown indication
     Route: 065
  4. LOPRESSOR [Concomitant]
     Active Substance: METOPROLOL TARTRATE
     Indication: Product used for unknown indication
     Dosage: TAKE 1/2 TABLET BY MOUTH TWICE A DAY?FORM STRENGTH: 25?FORM STRENGTH UNITS: MILLIGRAM
     Route: 048
  5. VITAMIN E [Concomitant]
     Active Substance: .ALPHA.-TOCOPHEROL
     Indication: Product used for unknown indication
     Dosage: FORM STRENGTH: 4000?FORM STRENGTH UNITS: UNIT
     Route: 048
  6. LIPITOR [Concomitant]
     Active Substance: ATORVASTATIN CALCIUM
     Indication: Product used for unknown indication
     Dosage: FORM STRENGTH: 40?FORM STRENGTH UNITS: MILLIGRAM
     Route: 048
  7. ZYLOPRIM [Concomitant]
     Active Substance: ALLOPURINOL
     Indication: Product used for unknown indication
     Route: 048
  8. VITAMIN D3 [Concomitant]
     Active Substance: CHOLECALCIFEROL
     Indication: Product used for unknown indication
     Route: 048
  9. VITAMIN D3 [Concomitant]
     Active Substance: CHOLECALCIFEROL
     Indication: Product used for unknown indication
     Route: 048
  10. VITAMIN D3 [Concomitant]
     Active Substance: CHOLECALCIFEROL
     Indication: Product used for unknown indication
     Route: 048
  11. MORPHINE [Concomitant]
     Active Substance: MORPHINE
     Indication: Product used for unknown indication
     Dosage: MG PER DAY
     Route: 065
  12. OMEGA-3 FATTY ACIDS [Concomitant]
     Active Substance: OMEGA-3 FATTY ACIDS
     Indication: Product used for unknown indication
     Dosage: FORM STRENGTH: 1250?FORM STRENGTH UNITS: MILLIGRAM
     Route: 048
  13. CIALIS [Concomitant]
     Active Substance: TADALAFIL
     Indication: Product used for unknown indication
     Dosage: 20MG PO TWICE A WEEK AS NEEDED?FORM STRENGTH: 20?FORM STRENGTH UNITS: MILLIGRAM
     Route: 048
  14. RITUXAN [Suspect]
     Active Substance: RITUXIMAB
     Indication: B-cell small lymphocytic lymphoma
     Dosage: 375 MG/M2?WEEKLY FOR 4 WEEK AND THEN MONTHLY INFUSION
     Route: 042
     Dates: end: 20230227
  15. ROBAXIN [Concomitant]
     Active Substance: METHOCARBAMOL
     Indication: Muscle spasms
     Dosage: FORM STRENGTH: 500?FORM STRENGTH UNITS: MILLIGRAM?TAKE 1 TABLET BY MOUTH 4 TIMES A DAY
     Route: 048
  16. RUXIENCE [Concomitant]
     Active Substance: RITUXIMAB-PVVR
     Indication: Product used for unknown indication
  17. ULTRAM [Concomitant]
     Active Substance: TRAMADOL HYDROCHLORIDE
     Indication: Product used for unknown indication
     Dosage: TAKE 50MG MOUTH EVERY 6 HOURS AS NEEDED?FORM STRENGTH: 50?FORM STRENGTH UNITS: MILLIGRAM
     Route: 048
  18. FAMOTIDINE AN [Concomitant]
     Indication: Product used for unknown indication
  19. CYTOXAN [Concomitant]
     Active Substance: CYCLOPHOSPHAMIDE
     Indication: Product used for unknown indication
  20. VANCOCIN [Concomitant]
     Active Substance: VANCOMYCIN HYDROCHLORIDE
     Indication: Product used for unknown indication
  21. PROCARDIA [Concomitant]
     Active Substance: NIFEDIPINE
     Indication: Product used for unknown indication
     Route: 048
  22. CYMBALTA [Concomitant]
     Active Substance: DULOXETINE HYDROCHLORIDE
     Indication: Product used for unknown indication
     Route: 048
  23. ONCOVIN [Concomitant]
     Active Substance: VINCRISTINE SULFATE
     Indication: Product used for unknown indication
     Dosage: 2 MG
  24. ONCOVIN [Concomitant]
     Active Substance: VINCRISTINE SULFATE
     Indication: Product used for unknown indication
     Dosage: 1.4MG/M2
  25. ADRIAMYCIN [Concomitant]
     Active Substance: DOXORUBICIN HYDROCHLORIDE
     Indication: Product used for unknown indication
     Dosage: 104 MG
  26. ADRIAMYCIN [Concomitant]
     Active Substance: DOXORUBICIN HYDROCHLORIDE
     Indication: Product used for unknown indication
     Dosage: 50MG/M2= 104 MG
  27. ZESTRIL [Concomitant]
     Active Substance: LISINOPRIL
     Indication: Product used for unknown indication
     Route: 048
  28. VITAMIN B-COMPLEX [Concomitant]
     Active Substance: DEXPANTHENOL\NIACINAMIDE\PYRIDOXINE HYDROCHLORIDE\RIBOFLAVIN 5^-PHOSPHATE SODIUM\THIAMINE HYDROCHLOR
     Indication: Product used for unknown indication
     Route: 048
  29. ACETAMINOPHEN [Concomitant]
     Active Substance: ACETAMINOPHEN
     Indication: Product used for unknown indication
     Route: 048
  30. FLONASE [Concomitant]
     Active Substance: FLUTICASONE PROPIONATE
     Indication: Product used for unknown indication
  31. LAXISOFT [Concomitant]
     Indication: Product used for unknown indication
     Dosage: FORM STRENGTH: 10 MILLIGRAM?FREQUENCY TEXT: 0.5 TAB (10MG TOTAL) BY DAILY FOR 3 DAYS
     Route: 048
  32. ZOFRAN [Concomitant]
     Active Substance: ONDANSETRON HYDROCHLORIDE
     Indication: Product used for unknown indication

REACTIONS (29)
  - Disease progression [Fatal]
  - Pleural effusion [Not Recovered/Not Resolved]
  - Mass [Not Recovered/Not Resolved]
  - Dyspnoea [Not Recovered/Not Resolved]
  - Hypoalbuminaemia [Unknown]
  - Hypertension [Unknown]
  - Clostridium difficile colitis [Unknown]
  - Hyponatraemia [Unknown]
  - Sepsis [Unknown]
  - Cancer pain [Unknown]
  - Paraesthesia [Unknown]
  - Cellulitis [Unknown]
  - Inappropriate antidiuretic hormone secretion [Unknown]
  - Hyperlipidaemia [Unknown]
  - Polyneuropathy [Unknown]
  - Encephalopathy [Unknown]
  - Tricuspid valve incompetence [Unknown]
  - Osteomyelitis [Unknown]
  - Clostridium difficile infection [Unknown]
  - Intervertebral disc degeneration [Unknown]
  - Diastolic dysfunction [Unknown]
  - Sciatica [Unknown]
  - Intervertebral discitis [Unknown]
  - Thrombocytosis [Unknown]
  - Spinal cord abscess [Unknown]
  - Oral pain [Unknown]
  - Anaemia [Unknown]
  - Clostridium difficile colitis [Unknown]
  - Intervertebral disc degeneration [Unknown]

NARRATIVE: CASE EVENT DATE: 20230301
